FAERS Safety Report 6253476-1 (Version None)
Quarter: 2009Q2

REPORT INFORMATION
  Report Type: 
  Country: None (occurrence: None)
  Receive Date: 20090629
  Receipt Date: 20090629
  Transmission Date: 20091009
  Serious: No
  Sender: FDA-Public Use
  Company Number: None

PATIENT
  Age: 41 Year
  Sex: Female

DRUGS (1)
  1. ZICAM SEASONAL ALLERGY RELIEF PRINT TOO SMALL TO READ ZICAM, LLC [Suspect]
     Indication: SEASONAL ALLERGY
     Dosage: 1 SQUIRT EVERY 4 HOURS PRN NASAL
     Route: 045
     Dates: start: 20090601, end: 20090622

REACTIONS (2)
  - ANOSMIA [None]
  - PRODUCT QUALITY ISSUE [None]
